FAERS Safety Report 6170505-4 (Version None)
Quarter: 2009Q2

REPORT INFORMATION
  Report Type: 
  Country: None (occurrence: None)
  Receive Date: 20090427
  Receipt Date: 20090427
  Transmission Date: 20091009
  Serious: Yes (Life-Threatening, Hospitalization)
  Sender: FDA-Public Use
  Company Number: None

PATIENT
  Age: 52 Year
  Sex: Female
  Weight: 51 kg

DRUGS (5)
  1. LANTUS [Suspect]
     Indication: TYPE 2 DIABETES MELLITUS
     Dosage: 25 UNITS SQ QHS
  2. LOSARTAN POSTASSIUM [Concomitant]
  3. ASPIRIN [Concomitant]
  4. SENNA [Concomitant]
  5. PERCOCET [Concomitant]

REACTIONS (4)
  - BLOOD GLUCOSE DECREASED [None]
  - BODY TEMPERATURE DECREASED [None]
  - FALL [None]
  - UNRESPONSIVE TO STIMULI [None]
